FAERS Safety Report 5154226-2 (Version None)
Quarter: 2006Q4

REPORT INFORMATION
  Report Type: 
  Country: None (occurrence: None)
  Receive Date: 20061114
  Receipt Date: 20061027
  Transmission Date: 20070319
  Serious: Yes (Hospitalization)
  Sender: FDA-Public Use
  Company Number: GXKR2006AU06751

PATIENT
  Age: 35 Year
  Sex: 0

DRUGS (3)
  1. VERAPAMIL [Suspect]
     Dosage: 160 MG
  2. NIFEDIPINE [Concomitant]
  3. CAPTOPRIL [Concomitant]

REACTIONS (3)
  - NODAL ARRHYTHMIA [None]
  - OVERDOSE [None]
  - PULMONARY OEDEMA [None]
